FAERS Safety Report 6968980-8 (Version None)
Quarter: 2010Q3

REPORT INFORMATION
  Report Type: 
  Country: None (occurrence: None)
  Receive Date: 20100903
  Receipt Date: 20100903
  Transmission Date: 20110219
  Serious: Yes (Life-Threatening, Hospitalization)
  Sender: FDA-Public Use
  Company Number: None

PATIENT
  Age: 78 Year
  Sex: Male
  Weight: 80.29 kg

DRUGS (4)
  1. ACYCLOVIR [Suspect]
     Indication: CHLAMYDIAL INFECTION
     Dosage: 800 MG QID IV ; 100 MG BID PO
     Route: 048
     Dates: start: 20100614, end: 20100620
  2. ACYCLOVIR [Suspect]
     Indication: HERPES ZOSTER
     Dosage: 800 MG QID IV ; 100 MG BID PO
     Route: 048
     Dates: start: 20100614, end: 20100620
  3. ACYCLOVIR [Suspect]
     Indication: CHLAMYDIAL INFECTION
     Dosage: 800 MG QID IV ; 100 MG BID PO
     Route: 048
     Dates: start: 20100617, end: 20100620
  4. ACYCLOVIR [Suspect]
     Indication: HERPES ZOSTER
     Dosage: 800 MG QID IV ; 100 MG BID PO
     Route: 048
     Dates: start: 20100617, end: 20100620

REACTIONS (11)
  - AGRANULOCYTOSIS [None]
  - ANAEMIA [None]
  - CONDITION AGGRAVATED [None]
  - CONFUSIONAL STATE [None]
  - DECREASED APPETITE [None]
  - HERPES ZOSTER [None]
  - LEUKAEMIA [None]
  - LEUKOPENIA [None]
  - MALAISE [None]
  - NEUTROPENIA [None]
  - THROMBOCYTOPENIA [None]
